FAERS Safety Report 5888940-8 (Version None)
Quarter: 2008Q3

REPORT INFORMATION
  Report Type: 
  Country: None (occurrence: None)
  Receive Date: 20080917
  Receipt Date: 20080903
  Transmission Date: 20090109
  Serious: Yes (Other)
  Sender: FDA-Public Use
  Company Number: 8036931

PATIENT
  Age: 10 Year
  Sex: Female

DRUGS (5)
  1. PREDNISOLONE [Suspect]
     Dosage: 2 MG/KG/D
  2. PREDNISOLONE [Suspect]
     Dosage: PO
     Route: 048
  3. CARBAMAZEPINE [Suspect]
     Indication: EPILEPSY
  4. CLOBAZAM [Suspect]
     Indication: EPILEPSY
     Dosage: PO
     Route: 048
  5. IMMUNE GLOBULIN INTRAVENOUS (HUMAN) [Suspect]
     Dosage: IVI

REACTIONS (21)
  - ABSCESS [None]
  - BLOOD ALBUMIN DECREASED [None]
  - CONJUNCTIVITIS [None]
  - COUGH [None]
  - CULTURE POSITIVE [None]
  - DRUG HYPERSENSITIVITY [None]
  - DYSPNOEA [None]
  - HEPATOMEGALY [None]
  - LYMPHADENITIS [None]
  - LYMPHADENOPATHY [None]
  - MOUTH ULCERATION [None]
  - OEDEMA PERIPHERAL [None]
  - PULSE PRESSURE INCREASED [None]
  - PYREXIA [None]
  - RASH [None]
  - RASH MACULO-PAPULAR [None]
  - STAPHYLOCOCCAL INFECTION [None]
  - STOMATITIS [None]
  - TACHYCARDIA [None]
  - TENDONITIS [None]
  - WEIGHT BEARING DIFFICULTY [None]
